FAERS Safety Report 20082614 (Version 1)
Quarter: 2021Q4

REPORT INFORMATION
  Report Type: 
  Country: US (occurrence: US)
  Receive Date: 20211117
  Receipt Date: 20211117
  Transmission Date: 20220303
  Serious: No
  Sender: FDA-Public Use
  Company Number: US-Fresenius Medical Care Renal Therapies Group-FMC-2110-001622

PATIENT
  Age: 73 Year
  Sex: Male
  Weight: 80 kg

DRUGS (24)
  1. DELFLEX [Suspect]
     Active Substance: CALCIUM CHLORIDE\DEXTROSE\MAGNESIUM CHLORIDE\SODIUM CHLORIDE\SODIUM LACTATE
     Indication: End stage renal disease
     Dosage: PD ORDERS CCPD 4 EXCHANGES, FILL 2300 ML, DWELL 2HR30MIN, LAST FILL 2000 ML, 0 DAY EXCHANGES.
     Route: 033
  2. ACTEMRA [Concomitant]
     Active Substance: TOCILIZUMAB
     Dosage: 162 MG/0.9 ML, INJECT 1 SYRINGE SUBCUTANEOUSLY ONCE A WEEK.
  3. AMARYL [Concomitant]
     Active Substance: GLIMEPIRIDE
     Dosage: 1 TABLET ONCE A DAY (2MG).
  4. AMITRIPTYLINE [Concomitant]
     Active Substance: AMITRIPTYLINE
     Dosage: 75 MG TABLET EVERY NIGHT BY MOUTH.
  5. BUMETANIDE [Concomitant]
     Active Substance: BUMETANIDE
     Dosage: 2 MG TABLET:1 TABLET TWICE A DAY, BID EVERY OTHER DAY TOTAL 4MG. 1 MG TABLET:1 TABLET BY MOUTH EVERY
  6. CALCIUM ACETATE [Concomitant]
     Active Substance: CALCIUM ACETATE
     Dosage: 667 MG , 1 CAPSULE 3 TIMES A DAY WITH MEALS.
  7. CIPRO [Concomitant]
     Active Substance: CIPROFLOXACIN HYDROCHLORIDE
     Dosage: 250 MG TABLET , 1 TABLET TWICE A DAY.
  8. CLONIDINE [Concomitant]
     Active Substance: CLONIDINE
     Dosage: 0.3MG, 1 TABLET ORAL TWICE A DAY.
  9. COLACE [Concomitant]
     Active Substance: DOCUSATE SODIUM
     Dosage: 100 MG CAPSULE, 1 CAPSULE ORAL 3 TIMES A DAY, AS NEEDED.
  10. DILTIAZEM [Concomitant]
     Active Substance: DILTIAZEM
     Dosage: CD 240 MG CAPSULE EXTENDED RELEASE 24 HOUR, 1 CAPSULE ONCE A DAY.
  11. GABAPENTIN [Concomitant]
     Active Substance: GABAPENTIN
     Dosage: 100 MG CAPSULE, 1 CAPSULE 3 TIMES A DAY, AS NEEDED.
  12. GENTAMICIN [Concomitant]
     Active Substance: GENTAMICIN
     Dosage: 0.1 % TOPICAL CREAM, APPLY SMALL AMOUNT TO AFFECTED AREA.
  13. GLIPIZIDE [Concomitant]
     Active Substance: GLIPIZIDE
     Dosage: 5 MG TABLET, 1 TABLET ORAL ONCE A DAY.
  14. HEPARIN [Concomitant]
     Active Substance: HEPARIN SODIUM
     Dosage: 1000 UNIT/ML , 1 INJECTION ONCE A DAY , DIRECTLY INJECTED INTO PD SOLUTION DAILY.
  15. ISOSORBIDE MONONITRATE [Concomitant]
     Active Substance: ISOSORBIDE MONONITRATE
     Dosage: ER 30MG TABLET, EXTENDED RELEASE 24 HR: 1 TABLET ORAL ONCE A DAY. ER 60MG TABLET, EXTENDED RELEASE 2
  16. LIDOCAINE [Concomitant]
     Active Substance: LIDOCAINE
     Dosage: 3% TOPICAL CREAM, APPLY A SMALL AMOUNT TO SKIN 1 HOUR BEFORE DIALYSIS TREATMENT.
  17. MIRALAX [Concomitant]
     Active Substance: POLYETHYLENE GLYCOL 3350
     Dosage: 17 MG/DOSE ORAL POWDER, ONCE A DAY.
  18. NIFEDIPINE [Concomitant]
     Active Substance: NIFEDIPINE
     Dosage: ER 60MG TABLET, EXTENDED RELEASE, 1 TABLET ORAL, HOLD FOR SYSTOLIC BP {110 TAKE AS DIRECTED MWFSU.
  19. OMEPRAZOLE [Concomitant]
     Active Substance: OMEPRAZOLE
     Dosage: 40 MG CAPSULE, DELAYED RELEASE, ONE CAPSULE ORAL EVERY MORNING.
  20. ACETAMINOPHEN\OXYCODONE HYDROCHLORIDE [Concomitant]
     Active Substance: ACETAMINOPHEN\OXYCODONE HYDROCHLORIDE
     Dosage: 5MG-325MG TABLET, HALF TABLET TWICE A DAY AS NEEDED.
  21. PREDNISONE [Concomitant]
     Active Substance: PREDNISONE
     Dosage: 20MG TABLET: 1 ORAL AS DIRECTED ONCE A DAY. 10MG TABLET: 1 TABLET ORAL ONCE A DAY.
  22. TAMSULOSIN [Concomitant]
     Active Substance: TAMSULOSIN
     Dosage: 0.4MG CAPSULE ORAL EVERY AFTERNOON.
  23. TOPROL XL [Concomitant]
     Active Substance: METOPROLOL SUCCINATE
     Dosage: XL 100MG TABLET, EXTENDED RELEASE, 1 TABLET ORAL 3 TIMES A DAY.
  24. VITAMIN D3 [Concomitant]
     Active Substance: CHOLECALCIFEROL
     Dosage: 50MCFG (2000U) CAPSULE, 1 CAPSULE ONCE A DAY.

REACTIONS (1)
  - Dementia [Unknown]
